FAERS Safety Report 23717302 (Version 2)
Quarter: 2024Q2

REPORT INFORMATION
  Report Type: Spontaneous
  Country: US (occurrence: US)
  Receive Date: 20240408
  Receipt Date: 20240413
  Transmission Date: 20240716
  Serious: No
  Sender: FDA-Public Use
  Company Number: US-SANOFI-02000227

PATIENT
  Age: 77 Year
  Sex: Female

DRUGS (1)
  1. LANTUS SOLOSTAR [Suspect]
     Active Substance: INSULIN GLARGINE
     Indication: Type 2 diabetes mellitus
     Dosage: 20 IU

REACTIONS (3)
  - Injection site haemorrhage [Unknown]
  - Glycosylated haemoglobin increased [Unknown]
  - Device issue [Unknown]
